FAERS Safety Report 9127026 (Version 1)
Quarter: 2013Q1

REPORT INFORMATION
  Report Type: Spontaneous
  Country: US (occurrence: US)
  Receive Date: 20130228
  Receipt Date: 20130228
  Transmission Date: 20140127
  Serious: Yes (Other)
  Sender: FDA-Public Use
  Company Number: PHEH2013US002599

PATIENT
  Age: 60 Year
  Sex: Female

DRUGS (2)
  1. AFINITOR [Suspect]
     Indication: BREAST CANCER
     Dosage: 10 MG, DAILY
     Route: 048
     Dates: start: 20121122, end: 20121231
  2. AROMASIN [Concomitant]
     Indication: BREAST CANCER
     Dosage: 25 MG, DAILY
     Dates: start: 20121122, end: 20121231

REACTIONS (4)
  - Chronic obstructive pulmonary disease [Unknown]
  - Pneumonitis [Unknown]
  - Dyspnoea [Recovered/Resolved]
  - Cough [Unknown]
